FAERS Safety Report 16173622 (Version 1)
Quarter: 2019Q2

REPORT INFORMATION
  Report Type: Spontaneous
  Country: SI (occurrence: SI)
  Receive Date: 20190409
  Receipt Date: 20190409
  Transmission Date: 20190711
  Serious: Yes (Death, Hospitalization)
  Sender: FDA-Public Use
  Company Number: SI-JNJFOC-20190412606

PATIENT
  Sex: Female

DRUGS (3)
  1. RANITIDINE. [Concomitant]
     Active Substance: RANITIDINE
     Route: 065
  2. XARELTO [Suspect]
     Active Substance: RIVAROXABAN
     Indication: PULMONARY EMBOLISM
     Route: 065
     Dates: start: 2016, end: 20190313
  3. VALSARTAN. [Concomitant]
     Active Substance: VALSARTAN
     Route: 065

REACTIONS (7)
  - Headache [Unknown]
  - Cerebral haemorrhage [Fatal]
  - Vomiting [Unknown]
  - Intracranial pressure increased [Unknown]
  - Hemiparesis [Unknown]
  - Ruptured cerebral aneurysm [Fatal]
  - Nausea [Unknown]

NARRATIVE: CASE EVENT DATE: 20190314
